FAERS Safety Report 18871760 (Version 1)
Quarter: 2021Q1

REPORT INFORMATION
  Report Type: Spontaneous
  Country: US (occurrence: US)
  Receive Date: 20210210
  Receipt Date: 20210210
  Transmission Date: 20210420
  Serious: Yes (Other)
  Sender: FDA-Public Use
  Company Number: None

PATIENT
  Age: 25 Year
  Sex: Female
  Weight: 65.25 kg

DRUGS (6)
  1. WELLBUTRIN [Concomitant]
     Active Substance: BUPROPION HYDROCHLORIDE
  2. CIPROFLOXACIN HCL 500 MG TAB [Suspect]
     Active Substance: CIPROFLOXACIN HYDROCHLORIDE
     Indication: SINUSITIS
     Dosage: ?          QUANTITY:20 TABLET(S);?
     Route: 048
     Dates: start: 20210129, end: 20210207
  3. ZOLOFT [Concomitant]
     Active Substance: SERTRALINE HYDROCHLORIDE
  4. FINACEA FOAM [Concomitant]
     Active Substance: AZELAIC ACID
  5. SPIRONOLACTONE. [Concomitant]
     Active Substance: SPIRONOLACTONE
  6. TRETINOIN. [Concomitant]
     Active Substance: TRETINOIN

REACTIONS (11)
  - Impaired work ability [None]
  - Depressed mood [None]
  - Paranoia [None]
  - Loss of personal independence in daily activities [None]
  - Anxiety [None]
  - Nightmare [None]
  - Sleep deficit [None]
  - Mental disorder [None]
  - Suicidal ideation [None]
  - Self-injurious ideation [None]
  - Quality of life decreased [None]

NARRATIVE: CASE EVENT DATE: 20210204
